FAERS Safety Report 8813359 (Version 1)
Quarter: 2012Q4

REPORT INFORMATION
  Report Type: 
  Country: US (occurrence: US)
  Receive Date: 20120927
  Receipt Date: 20120927
  Transmission Date: 20130627
  Serious: No
  Sender: FDA-Public Use
  Company Number: US-AMGEN-USASP2012047325

PATIENT
  Age: 91 Year
  Sex: Female

DRUGS (1)
  1. PROLIA [Suspect]
     Indication: OSTEOPOROSIS POSTMENOPAUSAL
     Dates: start: 20120203

REACTIONS (5)
  - Oral pain [Unknown]
  - Oropharyngeal pain [Unknown]
  - Oral mucosal erythema [Unknown]
  - Pharyngeal erythema [Unknown]
  - Lymphadenopathy [Not Recovered/Not Resolved]
